FAERS Safety Report 7118873-0 (Version None)
Quarter: 2010Q4

REPORT INFORMATION
  Report Type: 
  Country: None (occurrence: None)
  Receive Date: 20101027
  Receipt Date: 20100706
  Transmission Date: 20110411
  Serious: Yes (Other)
  Sender: FDA-Public Use
  Company Number: US-WYE-H16000110

PATIENT
  Age: 65 Year
  Sex: Female
  Weight: 60.84 kg

DRUGS (2)
  1. PREMARIN [Suspect]
     Indication: PROPHYLAXIS
     Dosage: 1/2 OF A PLUNGER, TWICE  A WEEK, VAGINAL
     Route: 067
     Dates: start: 20100630
  2. ZOCOR [Concomitant]

REACTIONS (1)
  - BLOOD PRESSURE INCREASED [None]
